FAERS Safety Report 18337311 (Version 2)
Quarter: 2020Q4

REPORT INFORMATION
  Report Type: Report from Study
  Country: AU (occurrence: AU)
  Receive Date: 20201002
  Receipt Date: 20201230
  Transmission Date: 20210113
  Serious: Yes (Hospitalization, Other)
  Sender: FDA-Public Use
  Company Number: AU-REGENERON PHARMACEUTICALS, INC.-2020-78735

PATIENT

DRUGS (1)
  1. EYLEA [Suspect]
     Active Substance: AFLIBERCEPT
     Indication: NEOVASCULAR AGE-RELATED MACULAR DEGENERATION
     Dosage: INTRAVITREAL INJECTION TO BOTH EYES EVERY TWO MONTHS
     Route: 031
     Dates: start: 20200429

REACTIONS (18)
  - Cerebrovascular accident [Recovered/Resolved with Sequelae]
  - Amnesia [Unknown]
  - Hypoacusis [Unknown]
  - Visual impairment [Not Recovered/Not Resolved]
  - Visual impairment [Unknown]
  - Visual impairment [Unknown]
  - Renal impairment [Unknown]
  - Gastroenteritis [Unknown]
  - Eyelid infection [Unknown]
  - Retinal vascular occlusion [Unknown]
  - Renal disorder [Unknown]
  - Metamorphopsia [Not Recovered/Not Resolved]
  - Dyschromatopsia [Not Recovered/Not Resolved]
  - Visual acuity reduced [Unknown]
  - Diabetes mellitus [Unknown]
  - Osteoarthritis [Unknown]
  - Injection site pain [Unknown]
  - Visual impairment [Recovered/Resolved]

NARRATIVE: CASE EVENT DATE: 202004
